FAERS Safety Report 19869443 (Version 1)
Quarter: 2021Q3

REPORT INFORMATION
  Report Type: Spontaneous
  Country: US (occurrence: US)
  Receive Date: 20210923
  Receipt Date: 20210923
  Transmission Date: 20211014
  Serious: Yes (Hospitalization)
  Sender: FDA-Public Use
  Company Number: US-STRIDES ARCOLAB LIMITED-2021SP027400

PATIENT
  Age: 62 Year
  Sex: Male

DRUGS (2)
  1. MEDROL [Suspect]
     Active Substance: METHYLPREDNISOLONE
     Indication: ARTHRALGIA
     Dosage: 4 MILLIGRAM
     Route: 065
  2. PREDNISOLONE. [Suspect]
     Active Substance: PREDNISOLONE
     Indication: ARTHRITIS
     Dosage: 10 MILLIGRAM, TID
     Route: 065

REACTIONS (8)
  - Disease progression [Recovered/Resolved]
  - Osteomyelitis [Recovered/Resolved]
  - Muscle abscess [Recovered/Resolved]
  - Leukocytosis [Recovered/Resolved]
  - Arthritis bacterial [Recovered/Resolved]
  - Staphylococcal bacteraemia [Recovered/Resolved]
  - Cellulitis [Recovered/Resolved]
  - Drug ineffective [Unknown]
